FAERS Safety Report 5235060-1 (Version None)
Quarter: 2007Q1

REPORT INFORMATION
  Report Type: 
  Country: None (occurrence: None)
  Receive Date: 20070207
  Receipt Date: 20070122
  Transmission Date: 20070707
  Serious: Yes (Hospitalization)
  Sender: FDA-Public Use
  Company Number: US019326

PATIENT
  Sex: Male

DRUGS (2)
  1. PROVIGIL [Suspect]
  2. METHADONE HCL [Suspect]
     Indication: BACK PAIN

REACTIONS (3)
  - DISORIENTATION [None]
  - DRUG WITHDRAWAL SYNDROME [None]
  - NERVOUS SYSTEM DISORDER [None]
